FAERS Safety Report 16019214 (Version 1)
Quarter: 2019Q1

REPORT INFORMATION
  Report Type: Spontaneous
  Country: NL (occurrence: NL)
  Receive Date: 20190228
  Receipt Date: 20190228
  Transmission Date: 20190418
  Serious: Yes (Hospitalization)
  Sender: FDA-Public Use
  Company Number: NL-TEVA-2019-NL-1016650

PATIENT
  Age: 81 Year
  Sex: Female
  Weight: 88 kg

DRUGS (8)
  1. NEXIUM 20 MG [Concomitant]
     Dosage: 1 DOSAGE FORMS DAILY; 1D1
  2. TRAMADOL/PARACETAMOL 37.5/325MG [Concomitant]
  3. ZOLPIDEM [Concomitant]
     Active Substance: ZOLPIDEM\ZOLPIDEM TARTRATE
     Dosage: ZN1
  4. SIMVASTATINE 20 MG [Concomitant]
     Dosage: 20 MILLIGRAM DAILY; 1D1
  5. VALSARTAN. [Concomitant]
     Active Substance: VALSARTAN
     Dosage: D1
  6. COTRIMOXAZOL TABLET, 160/800 MG (MILLIGRAM) [Suspect]
     Active Substance: SULFAMETHOXAZOLE\TRIMETHOPRIM
     Indication: URINARY TRACT INFECTION
     Dosage: 1 DOSAGE FORMS DAILY; 2DD1
     Route: 065
     Dates: start: 20190124, end: 20190125
  7. METFORMINE 850 MG [Concomitant]
     Active Substance: METFORMIN HYDROCHLORIDE
     Dosage: 2D1
  8. GLICLAZIDE 80 MG [Concomitant]
     Active Substance: GLICLAZIDE
     Dosage: 80 MILLIGRAM DAILY; 1D1

REACTIONS (2)
  - Rash generalised [Recovering/Resolving]
  - Dyspnoea [Recovered/Resolved]

NARRATIVE: CASE EVENT DATE: 20190124
